FAERS Safety Report 21215559 (Version 4)
Quarter: 2023Q4

REPORT INFORMATION
  Report Type: Spontaneous
  Country: US (occurrence: US)
  Receive Date: 20220816
  Receipt Date: 20231031
  Transmission Date: 20240110
  Serious: Yes (Other)
  Sender: FDA-Public Use
  Company Number: US-PFIZER INC-PV202200043032

PATIENT
  Age: 72 Year
  Sex: Female

DRUGS (1)
  1. XELJANZ [Suspect]
     Active Substance: TOFACITINIB CITRATE
     Indication: Arthralgia
     Dosage: 5 MG (60 TAB BOTTLE)

REACTIONS (4)
  - Atrial fibrillation [Unknown]
  - Hand deformity [Unknown]
  - Fatigue [Unknown]
  - Off label use [Unknown]
